FAERS Safety Report 7352516-6 (Version None)
Quarter: 2011Q1

REPORT INFORMATION
  Report Type: 
  Country: None (occurrence: None)
  Receive Date: 20110309
  Receipt Date: 20110309
  Transmission Date: 20110831
  Serious: Yes (Death)
  Sender: FDA-Public Use
  Company Number: None

PATIENT
  Age: 51 Year
  Sex: Male

DRUGS (3)
  1. GEMCITABINE [Suspect]
  2. ASCORBIC ACID [Suspect]
     Indication: PANCREATIC CARCINOMA METASTATIC
     Dosage: 75G/INFUSION
     Route: 042
     Dates: start: 20100825, end: 20101013
  3. ERLOTINIB HYDROCHLORIDE [Suspect]

REACTIONS (1)
  - DEATH [None]
